FAERS Safety Report 8835432 (Version 1)
Quarter: 2012Q4

REPORT INFORMATION
  Report Type: 
  Country: US (occurrence: US)
  Receive Date: 20121011
  Receipt Date: 20121011
  Transmission Date: 20130627
  Serious: Yes (Other)
  Sender: FDA-Public Use
  Company Number: US-MPIJNJ-2012-06873

PATIENT

DRUGS (8)
  1. VELCADE [Suspect]
     Indication: MULTIPLE MYELOMA
     Dosage: 1 mg/m2, Cyclic
     Route: 042
     Dates: start: 201112, end: 201112
  2. VELCADE [Suspect]
     Dosage: UNK, 1/week
     Route: 042
     Dates: start: 201201, end: 201202
  3. VELCADE [Suspect]
     Dosage: 1.1 mg/m2, 1/week
     Route: 042
     Dates: start: 201202
  4. VELCADE [Suspect]
     Dosage: 1 mg/m2, 1/week
     Route: 040
     Dates: start: 201208
  5. REVLIMID [Suspect]
     Indication: MULTIPLE MYELOMA
     Dosage: 5 mg, UNK
     Dates: start: 201112
  6. REVLIMID [Suspect]
     Dosage: 10 mg, UNK
     Dates: start: 201202
  7. DEXAMETHASONE [Suspect]
     Indication: MULTIPLE MYELOMA
     Dosage: 20 mg, UNK
     Dates: start: 201112
  8. LYRICA [Concomitant]
     Indication: NEUROPATHY PERIPHERAL
     Dosage: 50 mg, qd
     Dates: start: 201202

REACTIONS (10)
  - Ataxia [Recovered/Resolved]
  - Fall [Recovered/Resolved]
  - Hair colour changes [Recovered/Resolved]
  - Weight decreased [Recovered/Resolved]
  - Dry skin [Recovered/Resolved]
  - Decreased appetite [Recovered/Resolved]
  - Dysgeusia [Recovered/Resolved]
  - Dizziness [Recovered/Resolved]
  - Neuropathy peripheral [Recovered/Resolved]
  - Nasopharyngitis [Not Recovered/Not Resolved]
